FAERS Safety Report 5133581-3 (Version None)
Quarter: 2006Q4

REPORT INFORMATION
  Report Type: 
  Country: None (occurrence: None)
  Receive Date: 20061024
  Receipt Date: 20060518
  Transmission Date: 20070319
  Serious: Yes (Hospitalization)
  Sender: FDA-Public Use
  Company Number: US-BAYER-200613444BWH

PATIENT
  Age: 58 Year
  Sex: Female

DRUGS (10)
  1. NEXAVAR [Suspect]
     Indication: RENAL MASS
     Dosage: TOTAL DAILY DOSE: 800 MG  UNIT DOSE: 200 MG
     Route: 048
     Dates: start: 20060328, end: 20060517
  2. NEXAVAR [Suspect]
     Dosage: TOTAL DAILY DOSE: 800 MG  UNIT DOSE: 200 MG
     Route: 048
     Dates: start: 20060522, end: 20060606
  3. TAXOTERE [Concomitant]
     Route: 042
  4. HYDROCHLOROTHIAZIDE [Concomitant]
     Route: 048
  5. VICODIN [Concomitant]
  6. BENICAR [Concomitant]
     Route: 048
  7. TOPAMAX [Concomitant]
     Dosage: TOTAL DAILY DOSE: 50 MG
     Route: 048
  8. CELEBREX [Concomitant]
     Route: 048
  9. PROTONIX [Concomitant]
     Route: 048
  10. VYTORIN [Concomitant]
     Route: 048

REACTIONS (13)
  - ARTHRALGIA [None]
  - BLISTER [None]
  - BURNING SENSATION [None]
  - DYSPHAGIA [None]
  - EATING DISORDER [None]
  - EXCORIATION [None]
  - FACIAL PAIN [None]
  - HAEMORRHAGE [None]
  - HYPERKERATOSIS [None]
  - HYPOKALAEMIA [None]
  - PAIN IN EXTREMITY [None]
  - SKIN EXFOLIATION [None]
  - STOMATITIS [None]
